FAERS Safety Report 24037106 (Version 1)
Quarter: 2024Q3

REPORT INFORMATION
  Report Type: Report from Study
  Country: TR (occurrence: TR)
  Receive Date: 20240701
  Receipt Date: 20240701
  Transmission Date: 20241016
  Serious: No
  Sender: SANDOZ
  Company Number: TR-SANDOZ-SDZ2023TR015656

PATIENT
  Age: 14 Year
  Sex: Male
  Weight: 45 kg

DRUGS (2)
  1. OMNITROPE [Suspect]
     Active Substance: SOMATROPIN
     Indication: Growth hormone deficiency
     Dosage: UNK; 15 MG (45 IU)/1.5 ML; FREQUENCY: WEEKLY 7
     Route: 058
     Dates: start: 20221214
  2. OMNITROPE [Suspect]
     Active Substance: SOMATROPIN
     Indication: Growth hormone deficiency
     Dosage: UNK; 15 MG (45 IU)/1.5 ML; FREQUENCY: WEEKLY 7
     Route: 058
     Dates: start: 20221214

REACTIONS (1)
  - Device malfunction [Unknown]

NARRATIVE: CASE EVENT DATE: 20230725
